FAERS Safety Report 5019595-2 (Version None)
Quarter: 2006Q2

REPORT INFORMATION
  Report Type: 
  Country: None (occurrence: None)
  Receive Date: 20060606
  Receipt Date: 20060526
  Transmission Date: 20061013
  Serious: Yes (Other)
  Sender: FDA-Public Use
  Company Number: RU-MERCK-0605RUS00005

PATIENT
  Age: 50 Year
  Sex: Male

DRUGS (3)
  1. PRIMAXIN [Suspect]
     Indication: ACUTE MYELOID LEUKAEMIA
     Route: 065
     Dates: start: 20060301, end: 20060301
  2. FLUCONAZOLE [Concomitant]
     Indication: ACUTE MYELOID LEUKAEMIA
     Route: 065
  3. VANCOMYCIN [Concomitant]
     Indication: ACUTE MYELOID LEUKAEMIA
     Route: 065

REACTIONS (2)
  - BODY TEMPERATURE INCREASED [None]
  - BRONCHOSPASM [None]
